FAERS Safety Report 4990424-6 (Version None)
Quarter: 2006Q1

REPORT INFORMATION
  Report Type: 
  Country: None (occurrence: None)
  Receive Date: 20060315
  Receipt Date: 20050329
  Transmission Date: 20060701
  Serious: Yes (Other)
  Sender: FDA-Public Use
  Company Number: USA050393372

PATIENT
  Age: 79 Year
  Sex: Male
  Weight: 99.7 kg

DRUGS (7)
  1. GEMZAR [Suspect]
     Indication: NON-SMALL CELL LUNG CANCER
     Dosage: 1780 MG, INTRAVENOUS
     Route: 042
     Dates: start: 20050104, end: 20050304
  2. CARBOPLATIN [Concomitant]
  3. FLECAINIDE ACETATE [Concomitant]
  4. LIPITOR [Concomitant]
  5. FLONASE [Concomitant]
  6. SINEMET CR [Concomitant]
  7. VITAMIN C (VITAMIN C) [Concomitant]

REACTIONS (4)
  - ANAEMIA [None]
  - DIZZINESS [None]
  - NEUTROPENIA [None]
  - THROMBOCYTOPENIA [None]
